FAERS Safety Report 17411445 (Version 3)
Quarter: 2020Q1

REPORT INFORMATION
  Report Type: Spontaneous
  Country: FR (occurrence: FR)
  Receive Date: 20200212
  Receipt Date: 20200302
  Transmission Date: 20200409
  Serious: Yes (Other)
  Sender: FDA-Public Use
  Company Number: FR-ROCHE-2540875

PATIENT
  Age: 11 Year
  Sex: Male
  Weight: 46 kg

DRUGS (13)
  1. TRIMETHOPRIME [Concomitant]
     Active Substance: TRIMETHOPRIM
     Route: 048
  2. AVASTIN [Suspect]
     Active Substance: BEVACIZUMAB
     Indication: MEDULLOBLASTOMA RECURRENT
     Route: 042
     Dates: start: 20190429
  3. TRIMETHOPRIME [Concomitant]
     Active Substance: TRIMETHOPRIM
     Indication: OPPORTUNISTIC INFECTION PROPHYLAXIS
     Route: 048
  4. ETOPOSIDE. [Suspect]
     Active Substance: ETOPOSIDE
     Indication: MEDULLOBLASTOMA RECURRENT
     Dosage: 35-50 MG PER METER SQUARE, THE FIRST 3 WEEKS OF EACH PART OF EACH CYCLE
     Route: 048
     Dates: start: 20190429
  5. SULFAMETHOXAZOLE [Concomitant]
     Active Substance: SULFAMETHOXAZOLE
     Indication: OPPORTUNISTIC INFECTION PROPHYLAXIS
     Route: 048
  6. CELECOXIB. [Suspect]
     Active Substance: CELECOXIB
     Indication: MEDULLOBLASTOMA RECURRENT
     Route: 048
     Dates: start: 20190429
  7. CYCLOPHOSPHAMIDE. [Suspect]
     Active Substance: CYCLOPHOSPHAMIDE
     Indication: MEDULLOBLASTOMA RECURRENT
     Dosage: 2.5MG / KG (MAX 100MG), THE LAST 3 WEEKS OF EACH PART OF EACH CYCLE
     Route: 048
     Dates: start: 20190520
  8. THALIDOMIDE [Suspect]
     Active Substance: THALIDOMIDE
     Indication: MEDULLOBLASTOMA RECURRENT
     Route: 048
     Dates: start: 20190429, end: 20191115
  9. CYTARABINE. [Suspect]
     Active Substance: CYTARABINE
     Indication: MEDULLOBLASTOMA RECURRENT
     Route: 037
     Dates: start: 20190513
  10. ETOPOSIDE. [Suspect]
     Active Substance: ETOPOSIDE
     Indication: MEDULLOBLASTOMA RECURRENT
     Dosage: 5 INJECTIONS EVERY 4 WEEKS
     Route: 039
     Dates: start: 20190429
  11. ENANTONE LP [Suspect]
     Active Substance: LEUPROLIDE ACETATE
     Indication: BLOOD GROWTH HORMONE DECREASED
     Route: 058
     Dates: start: 201910
  12. FENOFIBRATE. [Suspect]
     Active Substance: FENOFIBRATE
     Indication: MEDULLOBLASTOMA RECURRENT
     Route: 048
     Dates: start: 20190429
  13. SULFAMETHOXAZOLE [Concomitant]
     Active Substance: SULFAMETHOXAZOLE
     Route: 048

REACTIONS (2)
  - Condition aggravated [Not Recovered/Not Resolved]
  - Bipolar disorder [Not Recovered/Not Resolved]

NARRATIVE: CASE EVENT DATE: 201910
